FAERS Safety Report 12255598 (Version 1)
Quarter: 2016Q2

REPORT INFORMATION
  Report Type: Spontaneous
  Country: CA (occurrence: CA)
  Receive Date: 20160412
  Receipt Date: 20160412
  Transmission Date: 20160815
  Serious: Yes (Other)
  Sender: FDA-Public Use
  Company Number: CA-BAXTER-2016BAX017962

PATIENT
  Age: 85 Year
  Sex: Male

DRUGS (7)
  1. 0.9% SODIUM CHLORIDE INJECTION [Suspect]
     Active Substance: SODIUM CHLORIDE
     Indication: MEDICATION DILUTION
     Route: 042
     Dates: start: 20160331, end: 20160331
  2. STERILE WATER FOR INJECTION [Suspect]
     Active Substance: WATER
     Indication: MEDICATION DILUTION
     Dosage: INFUSE OVER 1 HOUR
     Route: 042
     Dates: start: 20160331, end: 20160331
  3. HIGHLY CONCENTRATED POTASSIUM CHLORIDE 100MEQ/L [Suspect]
     Active Substance: POTASSIUM CHLORIDE
     Indication: HYPOKALAEMIA
     Dosage: IN 1L NS INFUSION
     Route: 042
     Dates: start: 20160331, end: 20160331
  4. 5-ASA [Concomitant]
     Active Substance: MESALAMINE
     Indication: COLITIS ULCERATIVE
     Route: 048
     Dates: start: 20160328, end: 20160402
  5. HIGHLY CONCENTRATED POTASSIUM CHLORIDE 100MEQ/L [Suspect]
     Active Substance: POTASSIUM CHLORIDE
     Dosage: IN STERILE WATER FOR INJECTION, INFUSED OVER 1 HOUR
     Route: 042
     Dates: start: 20160331, end: 20160331
  6. CARVEDIOL [Concomitant]
     Active Substance: CARVEDILOL
     Indication: CARDIAC FAILURE
     Route: 048
     Dates: start: 20160328, end: 20160402
  7. BUDESONIDE. [Concomitant]
     Active Substance: BUDESONIDE
     Indication: COLITIS ULCERATIVE
     Dosage: SR
     Route: 048
     Dates: start: 20160328, end: 20160402

REACTIONS (4)
  - Swollen tongue [Recovered/Resolved]
  - Paraesthesia [Recovered/Resolved]
  - Tremor [Recovered/Resolved]
  - Infusion related reaction [None]

NARRATIVE: CASE EVENT DATE: 20160331
